FAERS Safety Report 6357534-2 (Version None)
Quarter: 2009Q3

REPORT INFORMATION
  Report Type: 
  Country: None (occurrence: None)
  Receive Date: 20090916
  Receipt Date: 20090911
  Transmission Date: 20100115
  Serious: Yes (Death, Other)
  Sender: FDA-Public Use
  Company Number: JP-ELI_LILLY_AND_COMPANY-JP200909002792

PATIENT
  Sex: Male

DRUGS (3)
  1. GEMZAR [Suspect]
     Indication: NON-SMALL CELL LUNG CANCER
     Dosage: 800 MG/M2, OTHER
     Route: 042
  2. GEMZAR [Suspect]
     Dosage: 1000 MG/M2, OTHER
     Route: 042
  3. CARBOPLATIN [Concomitant]
     Indication: NON-SMALL CELL LUNG CANCER
     Dosage: 4 D/F, OTHER
     Route: 042

REACTIONS (4)
  - HEPATITIS [None]
  - HYPERBILIRUBINAEMIA [None]
  - NAUSEA [None]
  - VOMITING [None]
